FAERS Safety Report 8565225-2 (Version None)
Quarter: 2012Q3

REPORT INFORMATION
  Report Type: 
  Country: None (occurrence: None)
  Receive Date: 20120803
  Receipt Date: 20120801
  Transmission Date: 20120928
  Serious: Yes (Hospitalization)
  Sender: FDA-Public Use
  Company Number: US-GLAXOSMITHKLINE-A0988141A

PATIENT
  Age: 59 Year
  Sex: Male
  Weight: 98 kg

DRUGS (10)
  1. INVESTIGATIONAL STUDY DRUG [Concomitant]
  2. PAZOPANIB [Suspect]
     Indication: HEPATIC NEOPLASM MALIGNANT
     Route: 048
     Dates: start: 20120726
  3. ENOXAPARIN [Concomitant]
  4. INVESTIGATIONAL STUDY DRUG [Concomitant]
  5. HYDROCODONE BITARTRATE [Concomitant]
  6. SORAFENIB [Concomitant]
  7. DIGOXIN [Concomitant]
  8. EVEROLIMUS [Suspect]
     Indication: HEPATIC NEOPLASM MALIGNANT
     Route: 048
     Dates: start: 20120726
  9. MOXIFLOXACIN [Concomitant]
  10. CAPECITABINE [Concomitant]

REACTIONS (1)
  - ATRIAL FIBRILLATION [None]
